FAERS Safety Report 8437622-7 (Version None)
Quarter: 2012Q2

REPORT INFORMATION
  Report Type: 
  Country: None (occurrence: None)
  Receive Date: 20120614
  Receipt Date: 20120430
  Transmission Date: 20120825
  Serious: No
  Sender: FDA-Public Use
  Company Number: US-AMGEN-USASP2012027318

PATIENT
  Age: 81 Year
  Sex: Female

DRUGS (2)
  1. ANASTROZOLE [Concomitant]
     Dosage: UNK
  2. PROLIA [Suspect]
     Indication: BONE LOSS
     Dosage: 60 MG, Q6MO
     Dates: start: 20120201

REACTIONS (2)
  - JOINT CREPITATION [None]
  - PAIN IN JAW [None]
